FAERS Safety Report 4318049-6 (Version None)
Quarter: 2004Q1

REPORT INFORMATION
  Report Type: 
  Country: None (occurrence: None)
  Receive Date: 20040317
  Receipt Date: 20031117
  Transmission Date: 20041129
  Serious: Yes (Death, Life-Threatening, Hospitalization)
  Sender: FDA-Public Use
  Company Number: PHHO2003BE14658

PATIENT
  Age: 67 Year
  Sex: Male
  Weight: 82 kg

DRUGS (2)
  1. OCTREOTIDE VS TAMOXIFEN [Suspect]
     Indication: HEPATIC NEOPLASM MALIGNANT NON-RESECTABLE
     Dosage: 30 MG, QMO
     Route: 030
     Dates: start: 20030925
  2. TAMOXIFEN CITRATE [Suspect]
     Dosage: 20 MG, QD
     Route: 048
     Dates: start: 20030925

REACTIONS (8)
  - BACK PAIN [None]
  - DEHYDRATION [None]
  - ENCEPHALOPATHY [None]
  - HEPATIC FAILURE [None]
  - HEPATIC NECROSIS [None]
  - MALIGNANT NEOPLASM PROGRESSION [None]
  - PORTAL VEIN THROMBOSIS [None]
  - RENAL FAILURE [None]
